FAERS Safety Report 23068594 (Version 2)
Quarter: 2023Q4

REPORT INFORMATION
  Report Type: Spontaneous
  Country: US (occurrence: US)
  Receive Date: 20231016
  Receipt Date: 20231016
  Transmission Date: 20240110
  Serious: No
  Sender: FDA-Public Use
  Company Number: US-SA-SAC20231009001000

PATIENT
  Age: 62 Year
  Sex: Male
  Weight: 103.8 kg

DRUGS (1)
  1. DUPIXENT [Suspect]
     Active Substance: DUPILUMAB
     Indication: Dermatitis atopic
     Dosage: 300 MG, QOW
     Route: 058
     Dates: start: 20230404

REACTIONS (4)
  - Neuralgia [Unknown]
  - Pain [Unknown]
  - Myalgia [Unknown]
  - Rash [Unknown]

NARRATIVE: CASE EVENT DATE: 20230101
